FAERS Safety Report 25205600 (Version 1)
Quarter: 2025Q2

REPORT INFORMATION
  Report Type: Spontaneous
  Country: AT (occurrence: AT)
  Receive Date: 20250417
  Receipt Date: 20250417
  Transmission Date: 20250716
  Serious: Yes (Death, Other)
  Sender: RANBAXY
  Company Number: AT-SUN PHARMACEUTICAL INDUSTRIES LTD-2025R1-504393

PATIENT
  Age: 36 Month
  Sex: Female

DRUGS (2)
  1. AMPHETAMINE [Suspect]
     Active Substance: AMPHETAMINE
     Indication: Product used for unknown indication
     Route: 065
  2. MORPHINE [Suspect]
     Active Substance: MORPHINE
     Indication: Product used for unknown indication
     Route: 065

REACTIONS (8)
  - Anaemia [Fatal]
  - Myelosuppression [Fatal]
  - Pneumonia [Fatal]
  - Toxicity to various agents [Fatal]
  - Therapy non-responder [Unknown]
  - Dyspnoea [Unknown]
  - Hypothermia [Unknown]
  - Haemorrhage [Unknown]
